FAERS Safety Report 12676211 (Version 1)
Quarter: 2016Q3

REPORT INFORMATION
  Report Type: Spontaneous
  Country: US (occurrence: None)
  Receive Date: 20160822
  Receipt Date: 20160822
  Transmission Date: 20161109
  Serious: Yes (Life-Threatening, Hospitalization, Disabling)
  Sender: FDA-Public Use
  Company Number: None

PATIENT
  Age: 38 Year
  Sex: Male
  Weight: 83.92 kg

DRUGS (3)
  1. SEROQUEL [Suspect]
     Active Substance: QUETIAPINE FUMARATE
  2. WHEY PROTEIN ENRICHED IN CYSTINE BOVINE. [Concomitant]
     Active Substance: WHEY PROTEIN ENRICHED IN CYSTINE BOVINE
  3. HYDROXIDIZINE [Concomitant]

REACTIONS (3)
  - Psychotic disorder [None]
  - Neuropathy peripheral [None]
  - Rhabdomyolysis [None]

NARRATIVE: CASE EVENT DATE: 20160807
